FAERS Safety Report 5494336-3 (Version None)
Quarter: 2007Q4

REPORT INFORMATION
  Report Type: 
  Country: None (occurrence: None)
  Receive Date: 20071022
  Receipt Date: 20071017
  Transmission Date: 20080405
  Serious: Yes (Life-Threatening, Hospitalization, Other)
  Sender: FDA-Public Use
  Company Number: E2090-00331-SPO-AT

PATIENT
  Age: 20 Year
  Sex: Male

DRUGS (1)
  1. ZONEGRAN [Suspect]
     Indication: PARTIAL SEIZURES
     Dosage: 300 MG, ORAL
     Route: 048
     Dates: start: 20070701, end: 20070710

REACTIONS (1)
  - THROMBOCYTOPENIA [None]
